FAERS Safety Report 9869544 (Version 1)
Quarter: 2014Q1

REPORT INFORMATION
  Report Type: Spontaneous
  Country: US (occurrence: US)
  Receive Date: 20140205
  Receipt Date: 20140205
  Transmission Date: 20141002
  Serious: No
  Sender: FDA-Public Use
  Company Number: US-PFIZER INC-2014030395

PATIENT
  Sex: Female

DRUGS (1)
  1. PRISTIQ [Suspect]
     Dosage: 50 MG, UNK

REACTIONS (3)
  - Intentional drug misuse [Unknown]
  - Drug withdrawal syndrome [Unknown]
  - Malaise [Unknown]
